FAERS Safety Report 7301923-6 (Version None)
Quarter: 2011Q1

REPORT INFORMATION
  Report Type: 
  Country: None (occurrence: None)
  Receive Date: 20110218
  Receipt Date: 20110209
  Transmission Date: 20110831
  Serious: Yes (Hospitalization, Other)
  Sender: FDA-Public Use
  Company Number: CA-ROCHE-759221

PATIENT
  Sex: Male

DRUGS (15)
  1. PEGASYS [Suspect]
     Indication: HEPATITIS C
     Route: 058
     Dates: start: 20101104, end: 20110112
  2. PEGASYS [Suspect]
     Route: 058
     Dates: start: 20110127
  3. METHADONE [Concomitant]
     Dosage: INDICATION:IV DRUG USE REPLACEMENT
     Route: 048
     Dates: start: 20080101, end: 20101224
  4. COPEGUS [Suspect]
     Route: 048
     Dates: start: 20101222
  5. CELEXA [Concomitant]
     Indication: DEPRESSION
     Route: 048
     Dates: end: 20101224
  6. ZYPREXA [Concomitant]
     Indication: DEPRESSION
     Route: 048
     Dates: end: 20101224
  7. COPEGUS [Suspect]
     Dosage: WEEK 8 OF TREATMENT.
     Route: 048
  8. COPEGUS [Suspect]
     Route: 048
     Dates: start: 20110112
  9. TRAZODONE [Concomitant]
  10. WELLBUTRIN [Concomitant]
     Indication: DEPRESSION
     Route: 048
     Dates: end: 20101224
  11. PEGASYS [Suspect]
     Route: 058
     Dates: start: 20110209
  12. COPEGUS [Suspect]
     Indication: HEPATITIS C
     Route: 048
     Dates: start: 20101104
  13. COPEGUS [Suspect]
     Route: 048
     Dates: start: 20101118
  14. COPEGUS [Suspect]
     Route: 048
     Dates: start: 20101208
  15. SEROQUEL [Concomitant]
     Indication: DEPRESSION
     Route: 048

REACTIONS (4)
  - HAEMOGLOBIN DECREASED [None]
  - HERNIA [None]
  - DEPRESSION [None]
  - SUICIDAL IDEATION [None]
